FAERS Safety Report 24657399 (Version 2)
Quarter: 2025Q1

REPORT INFORMATION
  Report Type: Spontaneous
  Country: CA (occurrence: CA)
  Receive Date: 20241125
  Receipt Date: 20250117
  Transmission Date: 20250408
  Serious: Yes (Death)
  Sender: PFIZER
  Company Number: CA-PFIZER INC-202300454103

PATIENT
  Age: 71 Year
  Sex: Female

DRUGS (10)
  1. RUXIENCE [Suspect]
     Active Substance: RITUXIMAB-PVVR
     Indication: Antisynthetase syndrome
     Route: 042
     Dates: start: 20240430, end: 20240514
  2. RUXIENCE [Suspect]
     Active Substance: RITUXIMAB-PVVR
     Indication: Interstitial lung disease
  3. FUROSEMIDE [Concomitant]
     Active Substance: FUROSEMIDE
  4. SPIRONOLACTONE [Concomitant]
     Active Substance: SPIRONOLACTONE
  5. XARELTO [Concomitant]
     Active Substance: RIVAROXABAN
  6. ASPIRIN [Concomitant]
     Active Substance: ASPIRIN
  7. VALTREX [Concomitant]
     Active Substance: VALACYCLOVIR HYDROCHLORIDE
     Indication: Oral herpes
  8. NYSTATIN [Concomitant]
     Active Substance: NYSTATIN
     Indication: Urinary tract infection
  9. NYSTATIN [Concomitant]
     Active Substance: NYSTATIN
     Indication: Candida infection
  10. TYLENOL [Concomitant]
     Active Substance: ACETAMINOPHEN

REACTIONS (5)
  - Respiratory failure [Fatal]
  - Cardiac failure [Fatal]
  - Sinusitis [Unknown]
  - Drug effective for unapproved indication [Unknown]
  - Off label use [Unknown]

NARRATIVE: CASE EVENT DATE: 20240101
